FAERS Safety Report 24176617 (Version 1)
Quarter: 2024Q3

REPORT INFORMATION
  Report Type: Spontaneous
  Country: CA (occurrence: CA)
  Receive Date: 20240806
  Receipt Date: 20240806
  Transmission Date: 20241017
  Serious: Yes (Hospitalization)
  Sender: AUROBINDO
  Company Number: CA-AUROBINDO-AUR-APL-2024-038792

PATIENT
  Sex: Female

DRUGS (2)
  1. ARIPIPRAZOLE [Suspect]
     Active Substance: ARIPIPRAZOLE
     Indication: Schizophrenia
     Dosage: 20 MILLIGRAM, ONCE A DAY (1 EVERY 1 DAYS)
     Route: 048
  2. RISPERIDONE [Suspect]
     Active Substance: RISPERIDONE
     Indication: Schizophrenia
     Dosage: 2 MILLIGRAM, ONCE A DAY (1 EVERY 1 DAYS)
     Route: 048

REACTIONS (1)
  - Drug ineffective [Unknown]
